FAERS Safety Report 19510575 (Version 1)
Quarter: 2021Q3

REPORT INFORMATION
  Report Type: Spontaneous
  Country: PL (occurrence: PL)
  Receive Date: 20210708
  Receipt Date: 20210708
  Transmission Date: 20211014
  Serious: Yes (Other)
  Sender: FDA-Public Use
  Company Number: PL-EUSA PHARMA (NETHERLANDS) B.V.-2021PL000226

PATIENT
  Age: 57 Year
  Sex: Male

DRUGS (1)
  1. SYLVANT [Suspect]
     Active Substance: SILTUXIMAB
     Indication: CASTLEMAN^S DISEASE
     Dosage: 11 MG/KG, EVERY 3 WEEKS
     Route: 042

REACTIONS (1)
  - Diffuse large B-cell lymphoma [Unknown]
